FAERS Safety Report 17975613 (Version 1)
Quarter: 2020Q3

REPORT INFORMATION
  Report Type: Spontaneous
  Country: JP (occurrence: JP)
  Receive Date: 20200702
  Receipt Date: 20200702
  Transmission Date: 20201103
  Serious: Yes (Other)
  Sender: FDA-Public Use
  Company Number: JP-PFIZER INC-2020252331

PATIENT
  Sex: Female

DRUGS (1)
  1. RHEUMATREX [Suspect]
     Active Substance: METHOTREXATE SODIUM
     Dosage: UNK
     Route: 048

REACTIONS (11)
  - Hypoaesthesia [Unknown]
  - Feeling cold [Unknown]
  - Paralysis [Unknown]
  - Volume blood decreased [Unknown]
  - Depression [Unknown]
  - Pyrexia [Unknown]
  - Overweight [Unknown]
  - Pulmonary oedema [Unknown]
  - Pachymeningitis [Unknown]
  - Therapeutic response decreased [Unknown]
  - Impaired healing [Unknown]
